FAERS Safety Report 6067386-6 (Version None)
Quarter: 2009Q1

REPORT INFORMATION
  Report Type: 
  Country: None (occurrence: None)
  Receive Date: 20090204
  Receipt Date: 20090204
  Transmission Date: 20090719
  Serious: Yes (Hospitalization)
  Sender: FDA-Public Use
  Company Number: None

PATIENT
  Age: 49 Year
  Sex: Male
  Weight: 161.2 kg

DRUGS (3)
  1. ARIPIPRAZOLE [Suspect]
     Indication: SCHIZOPHRENIA, PARANOID TYPE
     Dosage: 15 MG EVERY DAY PO
     Route: 048
     Dates: start: 20080730, end: 20090103
  2. LAMOTRIGINE [Suspect]
     Indication: MOOD ALTERED
     Dosage: 50 MG EVERY DAY PO
     Route: 048
     Dates: start: 20071130, end: 20090103
  3. LAMOTRIGINE [Suspect]
     Indication: SCHIZOAFFECTIVE DISORDER
     Dosage: 50 MG EVERY DAY PO
     Route: 048
     Dates: start: 20071130, end: 20090103

REACTIONS (15)
  - ABDOMINAL INFECTION [None]
  - ABDOMINAL PAIN [None]
  - ASTHENIA [None]
  - DIABETIC KETOACIDOSIS [None]
  - HEART RATE INCREASED [None]
  - HYPERPHAGIA [None]
  - LETHARGY [None]
  - LEUKOCYTOSIS [None]
  - NAUSEA [None]
  - PANCREATITIS [None]
  - POLYDIPSIA [None]
  - POLYURIA [None]
  - RESPIRATORY RATE INCREASED [None]
  - VISION BLURRED [None]
  - VOMITING [None]
